FAERS Safety Report 14092302 (Version 1)
Quarter: 2017Q4

REPORT INFORMATION
  Report Type: Spontaneous
  Country: US (occurrence: US)
  Receive Date: 20171015
  Receipt Date: 20171015
  Transmission Date: 20180321
  Serious: Yes (Life-Threatening, Other)
  Sender: FDA-Public Use
  Company Number: None

PATIENT
  Age: 71 Year
  Sex: Female
  Weight: 70.2 kg

DRUGS (9)
  1. HYDROCODONE [Concomitant]
     Active Substance: HYDROCODONE
  2. VERAPAMIL [Concomitant]
     Active Substance: VERAPAMIL HYDROCHLORIDE
  3. DIURETIC [Concomitant]
     Active Substance: UNSPECIFIED INGREDIENT
  4. TAMOXIPHEN [Suspect]
     Active Substance: TAMOXIFEN
     Route: 048
  5. CELEBREX [Concomitant]
     Active Substance: CELECOXIB
  6. FOSAMAX [Concomitant]
     Active Substance: ALENDRONATE SODIUM
  7. CALTRATE [Concomitant]
     Active Substance: CALCIUM CARBONATE
  8. VITAMIN D [Concomitant]
     Active Substance: CHOLECALCIFEROL
  9. ELIQUIS [Concomitant]
     Active Substance: APIXABAN

REACTIONS (8)
  - Oral mucosal blistering [None]
  - Vision blurred [None]
  - Anxiety [None]
  - Thrombosis [None]
  - Insomnia [None]
  - Dysgraphia [None]
  - Peripheral swelling [None]
  - Pulmonary thrombosis [None]
